FAERS Safety Report 23425026 (Version 1)
Quarter: 2024Q1

REPORT INFORMATION
  Report Type: Spontaneous
  Country: US (occurrence: US)
  Receive Date: 20240121
  Receipt Date: 20240121
  Transmission Date: 20240410
  Serious: Yes (Other)
  Sender: FDA-Public Use
  Company Number: US-BRISTOL-MYERS SQUIBB COMPANY-2024-009266

PATIENT
  Age: 95 Year
  Sex: Female

DRUGS (1)
  1. POMALYST [Suspect]
     Active Substance: POMALIDOMIDE
     Indication: Plasma cell myeloma
     Route: 048
     Dates: start: 20201002

REACTIONS (4)
  - Sinusitis [Recovering/Resolving]
  - Post-acute COVID-19 syndrome [Recovering/Resolving]
  - Gastroenteritis viral [Recovering/Resolving]
  - Off label use [Unknown]
